FAERS Safety Report 4482572-4 (Version None)
Quarter: 2004Q4

REPORT INFORMATION
  Report Type: 
  Country: None (occurrence: None)
  Receive Date: 20041022
  Receipt Date: 20041015
  Transmission Date: 20050328
  Serious: Yes (Other)
  Sender: FDA-Public Use
  Company Number: NL-JNJFOC-20041004623

PATIENT
  Age: 71 Year
  Sex: Female

DRUGS (10)
  1. LEVOFLOXACIN [Suspect]
  2. THEOPHYLLINE [Interacting]
  3. ACETYLCYSTEINE [Concomitant]
  4. FLUTICASONE PROPIONATE [Concomitant]
  5. PREDNISONE [Concomitant]
  6. SALBUTAMOL [Concomitant]
  7. IPRATROPIUM BROMIDE [Concomitant]
  8. DILTIAZEM [Concomitant]
  9. CARBASALATE CALCIUM [Concomitant]
  10. ISOSORBIDE DINITRATE [Concomitant]

REACTIONS (11)
  - CHRONIC OBSTRUCTIVE AIRWAYS DISEASE EXACERBATED [None]
  - COMA [None]
  - CONVULSION [None]
  - COUGH [None]
  - CREATININE RENAL CLEARANCE DECREASED [None]
  - DRUG INTERACTION [None]
  - DRUG LEVEL DECREASED [None]
  - HYPOXIA [None]
  - POSTICTAL STATE [None]
  - PYREXIA [None]
  - RESPIRATORY TRACT INFECTION [None]
